FAERS Safety Report 22232378 (Version 2)
Quarter: 2023Q2

REPORT INFORMATION
  Report Type: Spontaneous
  Country: US (occurrence: None)
  Receive Date: 20230420
  Receipt Date: 20230420
  Transmission Date: 20230721
  Serious: No
  Sender: FDA-Public Use
  Company Number: US-ROCHE-3104261

PATIENT
  Sex: Male

DRUGS (1)
  1. ESBRIET [Suspect]
     Active Substance: PIRFENIDONE
     Indication: Product used for unknown indication
     Dosage: TAKE 3 TABLETS BY MOUTH THREE TIME A DAY
     Route: 048
     Dates: start: 20220115

REACTIONS (2)
  - Incorrect dose administered [Unknown]
  - No adverse event [Unknown]
